FAERS Safety Report 22222910 (Version 1)
Quarter: 2023Q2

REPORT INFORMATION
  Report Type: Spontaneous
  Country: US (occurrence: US)
  Receive Date: 20230418
  Receipt Date: 20230418
  Transmission Date: 20230722
  Serious: No
  Sender: FDA-Public Use
  Company Number: US-STRIDES ARCOLAB LIMITED-2022SP009075

PATIENT
  Age: 17 Year
  Sex: Male

DRUGS (19)
  1. BACLOFEN [Suspect]
     Active Substance: BACLOFEN
     Indication: Dystonia
     Dosage: UNK
     Route: 048
  2. BACLOFEN [Suspect]
     Active Substance: BACLOFEN
     Dosage: 437.9 MICROGRAM, PER DAY
     Route: 037
     Dates: start: 201606
  3. BACLOFEN [Suspect]
     Active Substance: BACLOFEN
     Dosage: 745.2 MICROGRAM, PER DAY
     Route: 037
  4. BACLOFEN [Suspect]
     Active Substance: BACLOFEN
     Dosage: 819.72 MICROGRAM, PER DAY
     Route: 037
     Dates: start: 201812
  5. BACLOFEN [Suspect]
     Active Substance: BACLOFEN
     Dosage: 1100 MICROGRAM,PER DAY
     Route: 037
     Dates: start: 202001
  6. BACLOFEN [Suspect]
     Active Substance: BACLOFEN
     Dosage: 100 MICROGRAM,PER DAY
     Route: 037
  7. BACLOFEN [Suspect]
     Active Substance: BACLOFEN
     Dosage: 275 MICROGRAM,PER DAY
     Route: 037
     Dates: start: 202003
  8. BACLOFEN [Suspect]
     Active Substance: BACLOFEN
     Dosage: 375.4 MICROGRAM,PER DAY
     Route: 037
     Dates: start: 202004
  9. BACLOFEN [Suspect]
     Active Substance: BACLOFEN
     Dosage: 230.2 MICROGRAM,PER DAY
     Route: 037
  10. BACLOFEN [Suspect]
     Active Substance: BACLOFEN
     Dosage: 253.2 MICROGRAM,PER DAY
     Route: 037
  11. BACLOFEN [Suspect]
     Active Substance: BACLOFEN
     Dosage: 278.1 MICROGRAM,PER DAY
     Route: 037
  12. DIAZEPAM [Suspect]
     Active Substance: DIAZEPAM
     Indication: Bipolar disorder
     Dosage: 1 MILLIGRAM, BID
     Route: 065
  13. DIAZEPAM [Suspect]
     Active Substance: DIAZEPAM
     Dosage: UNK, TAPPERED OFF
     Route: 065
  14. CITALOPRAM [Suspect]
     Active Substance: CITALOPRAM HYDROBROMIDE
     Indication: Bipolar disorder
     Dosage: 10 MILLIGRAM, AT BED TIME,EVERY NIGHT AT BEDTIME.
     Route: 065
  15. CARBIDOPA LEVODOPA [Concomitant]
     Active Substance: CARBIDOPA\LEVODOPA
     Indication: Dystonia
     Dosage: UNK
     Route: 065
  16. VALPROIC ACID [Concomitant]
     Active Substance: VALPROIC ACID
     Indication: Bipolar disorder
     Dosage: 375 MILLIGRAM, BID,PER DAY
     Route: 065
  17. VALPROIC ACID [Concomitant]
     Active Substance: VALPROIC ACID
     Dosage: UNK,EXTENDED RELEASE FORMULATION
     Route: 065
  18. BOTULINUM TOXIN NOS [Concomitant]
     Active Substance: BOTULINUM TOXIN NOS
     Indication: Dystonia
     Dosage: UNK,INJECTION
     Route: 065
  19. LAMOTRIGINE [Concomitant]
     Active Substance: LAMOTRIGINE
     Indication: Bipolar disorder
     Dosage: 150 MILLIGRAM, BID
     Route: 065

REACTIONS (1)
  - Off label use [Unknown]
